FAERS Safety Report 4852022-4 (Version None)
Quarter: 2005Q4

REPORT INFORMATION
  Report Type: 
  Country: None (occurrence: None)
  Receive Date: 20051209
  Receipt Date: 20051130
  Transmission Date: 20060501
  Serious: Yes (Other)
  Sender: FDA-Public Use
  Company Number: 2005-237

PATIENT
  Sex: Female
  Weight: 63.05 kg

DRUGS (3)
  1. METOCLOPRAMIDE [Suspect]
     Indication: NAUSEA
     Dosage: 1 TABLET ONCE
     Dates: start: 20051027, end: 20051027
  2. METOCLOPRAMIDE [Suspect]
     Indication: PREGNANCY
     Dosage: 1 TABLET ONCE
     Dates: start: 20051027, end: 20051027
  3. VITAMIN AND MINERAL PRENATAL SUPPLEMENT W/ FOLIC ACID CAP [Concomitant]

REACTIONS (6)
  - ABORTION SPONTANEOUS [None]
  - DRUG EXPOSURE DURING PREGNANCY [None]
  - DRUG INEFFECTIVE [None]
  - INTRA-UTERINE DEATH [None]
  - MALAISE [None]
  - NAUSEA [None]
